FAERS Safety Report 4501541-9 (Version None)
Quarter: 2004Q4

REPORT INFORMATION
  Report Type: 
  Country: None (occurrence: None)
  Receive Date: 20040928
  Receipt Date: 20040813
  Transmission Date: 20050328
  Serious: No
  Sender: FDA-Public Use
  Company Number: 04P-163-0270860-00

PATIENT
  Age: 61 Year
  Sex: Female
  Weight: 86.1834 kg

DRUGS (9)
  1. HUMIRA [Suspect]
     Indication: RHEUMATOID ARTHRITIS
     Dosage: 40 MG, 1 IN 2 WK, SUBCUTANEOUS
     Route: 058
     Dates: start: 20040520, end: 20040729
  2. HYDROCODONE [Concomitant]
  3. METHOTREXATE SODIUM [Concomitant]
  4. MULTI-VITAMINS [Concomitant]
  5. BROMOMONE [Concomitant]
  6. PAPAYA [Concomitant]
  7. FOLIC ACID [Concomitant]
  8. SALMON OIL [Concomitant]
  9. MSM [Concomitant]

REACTIONS (6)
  - ALOPECIA [None]
  - DRY MOUTH [None]
  - HEADACHE [None]
  - PAIN [None]
  - RASH [None]
  - SWELLING [None]
